FAERS Safety Report 12463282 (Version 1)
Quarter: 2016Q2

REPORT INFORMATION
  Report Type: Spontaneous
  Country: US (occurrence: None)
  Receive Date: 20160613
  Receipt Date: 20160613
  Transmission Date: 20160815
  Serious: No
  Sender: FDA-Public Use
  Company Number: None

PATIENT
  Age: 53 Year
  Sex: Female

DRUGS (8)
  1. ANTI HYPERTENSIVE MEDS [Concomitant]
  2. CALCIUM WITH VITAMIN D3 [Concomitant]
     Active Substance: CALCIUM CARBONATE\CHOLECALCIFEROL
  3. VITAMIN E [Concomitant]
     Active Substance: .ALPHA.-TOCOPHEROL
  4. LISINOPRIL. [Concomitant]
     Active Substance: LISINOPRIL
  5. HCTZ [Concomitant]
     Active Substance: HYDROCHLOROTHIAZIDE
  6. PRAVASTATIN [Suspect]
     Active Substance: PRAVASTATIN\PRAVASTATIN SODIUM
  7. LOVASTATIN. [Suspect]
     Active Substance: LOVASTATIN
     Indication: BLOOD CHOLESTEROL INCREASED
  8. FERROUS SULFATE. [Concomitant]
     Active Substance: FERROUS SULFATE

REACTIONS (2)
  - Condition aggravated [None]
  - Muscular weakness [None]

NARRATIVE: CASE EVENT DATE: 20130619
